FAERS Safety Report 4384996-2 (Version None)
Quarter: 2004Q2

REPORT INFORMATION
  Report Type: 
  Country: None (occurrence: None)
  Receive Date: 20040623
  Receipt Date: 20040623
  Transmission Date: 20050107
  Serious: Yes (Other)
  Sender: FDA-Public Use
  Company Number: None

PATIENT
  Age: 86 Year
  Sex: Female

DRUGS (4)
  1. RESTASIS [Suspect]
     Dosage: 1 DROP EACH EYE BID
     Route: 047
     Dates: start: 20040611, end: 20040614
  2. HYDROCODONE BITARTRATE AND ACETAMINOPHEN [Concomitant]
  3. PRILOSEC [Concomitant]
  4. NEURONTIN [Concomitant]

REACTIONS (2)
  - OESOPHAGEAL PAIN [None]
  - PHARYNGOLARYNGEAL PAIN [None]
